FAERS Safety Report 6990066-7 (Version None)
Quarter: 2010Q3

REPORT INFORMATION
  Report Type: 
  Country: None (occurrence: None)
  Receive Date: 20100916
  Receipt Date: 20100503
  Transmission Date: 20110219
  Serious: Yes (Other)
  Sender: FDA-Public Use
  Company Number: US-PFIZER INC-2010042960

PATIENT
  Sex: Female
  Weight: 71.655 kg

DRUGS (9)
  1. LYRICA [Suspect]
     Indication: FIBROMYALGIA
     Dosage: 150 MG, 2X/DAY
     Route: 048
     Dates: start: 20080209, end: 20080227
  2. LYRICA [Suspect]
     Dosage: 300 MG, 2X/DAY
     Route: 048
     Dates: start: 20080227, end: 20090324
  3. LYRICA [Suspect]
     Dosage: 400 MG, 2X/DAY
     Route: 048
     Dates: start: 20090324, end: 20100221
  4. MINOCYCLINE [Concomitant]
     Dosage: 50 MG, 1X/DAY
  5. MAGNESIUM [Concomitant]
     Dosage: 600 MG, 1X/DAY AT NIGHT
  6. VITAMIN D [Concomitant]
     Dosage: 4000 IU, 1X/DAY
  7. VITAMIN D [Concomitant]
  8. FLEXERIL [Concomitant]
     Dosage: 10 MG, 2X/DAY
     Route: 048
  9. OMACOR [Concomitant]
     Dosage: 1000 MG, 3X/DAY
     Route: 048

REACTIONS (10)
  - AMNESIA [None]
  - ANXIETY [None]
  - DIARRHOEA [None]
  - DYSPEPSIA [None]
  - HEADACHE [None]
  - HYPERHIDROSIS [None]
  - INSOMNIA [None]
  - NAUSEA [None]
  - WEIGHT DECREASED [None]
  - WITHDRAWAL SYNDROME [None]
